FAERS Safety Report 15967413 (Version 1)
Quarter: 2019Q1

REPORT INFORMATION
  Report Type: Spontaneous
  Country: US (occurrence: US)
  Receive Date: 20190215
  Receipt Date: 20190215
  Transmission Date: 20190418
  Serious: Yes (Disabling)
  Sender: FDA-Public Use
  Company Number: None

PATIENT
  Age: 78 Year
  Sex: Female
  Weight: 74.7 kg

DRUGS (1)
  1. OMEPRAZOLE 20MG CAPSULES I DAILY MFG AUROBINDO S 1:E67 [Suspect]
     Active Substance: OMEPRAZOLE
     Indication: ABDOMINAL PAIN UPPER
     Dosage: ?          QUANTITY:1 CAPSULE(S);?
     Route: 048

REACTIONS (9)
  - Arthralgia [None]
  - Pain in extremity [None]
  - Irritability [None]
  - Osteopenia [None]
  - Fatigue [None]
  - Insomnia [None]
  - Knee arthroplasty [None]
  - Muscle strain [None]
  - Feeling jittery [None]

NARRATIVE: CASE EVENT DATE: 20190109
